FAERS Safety Report 13940568 (Version 5)
Quarter: 2017Q4

REPORT INFORMATION
  Report Type: Spontaneous
  Country: US (occurrence: US)
  Receive Date: 20170906
  Receipt Date: 20171011
  Transmission Date: 20180320
  Serious: No
  Sender: FDA-Public Use
  Company Number: US-GLAXOSMITHKLINE-US2017135055

PATIENT
  Sex: Female

DRUGS (1)
  1. TRANSDERM SCOP [Suspect]
     Active Substance: SCOPOLAMINE
     Indication: PRODUCT USED FOR UNKNOWN INDICATION
     Dosage: 1.5 MG, UNK
     Dates: start: 201702

REACTIONS (6)
  - Application site erythema [Unknown]
  - Application site wound [Unknown]
  - Application site discharge [Unknown]
  - Application site reaction [Unknown]
  - Dizziness [Unknown]
  - Product quality issue [Unknown]
